FAERS Safety Report 6301604-1 (Version None)
Quarter: 2009Q3

REPORT INFORMATION
  Report Type: 
  Country: None (occurrence: None)
  Receive Date: 20090807
  Receipt Date: 20090730
  Transmission Date: 20100115
  Serious: Yes (Other)
  Sender: FDA-Public Use
  Company Number: US-ABBOTT-09P-163-0588401-00

PATIENT
  Sex: Male

DRUGS (4)
  1. HUMIRA [Suspect]
     Indication: RHEUMATOID ARTHRITIS
     Route: 058
     Dates: start: 20070601, end: 20090501
  2. LEFLUNOMIDE [Concomitant]
     Indication: DRUG USE FOR UNKNOWN INDICATION
  3. PRILOSEC [Concomitant]
     Indication: DRUG USE FOR UNKNOWN INDICATION
  4. HYDROXYZINE [Concomitant]
     Indication: DRUG USE FOR UNKNOWN INDICATION

REACTIONS (6)
  - ACID FAST STAIN POSITIVE [None]
  - BRONCHITIS VIRAL [None]
  - GRANULOMA [None]
  - LUNG NEOPLASM [None]
  - NECROSIS [None]
  - TUBERCULOSIS [None]
